FAERS Safety Report 6436005-9 (Version None)
Quarter: 2009Q4

REPORT INFORMATION
  Report Type: 
  Country: None (occurrence: None)
  Receive Date: 20091111
  Receipt Date: 20091105
  Transmission Date: 20100525
  Serious: Yes (Hospitalization)
  Sender: FDA-Public Use
  Company Number: NZ-JNJFOC-20091101497

PATIENT
  Sex: Female

DRUGS (4)
  1. TOPIRAMATE [Suspect]
     Indication: EPILEPSY
     Route: 048
  2. VALPROATE SODIUM [Suspect]
     Indication: EPILEPSY
     Route: 048
  3. LEVETIRACETAM [Suspect]
     Indication: EPILEPSY
     Route: 048
  4. DIAZEPAM [Suspect]
     Indication: EPILEPSY
     Route: 048

REACTIONS (3)
  - CEREBRAL INFARCTION [None]
  - HYPONATRAEMIA [None]
  - OEDEMA PERIPHERAL [None]
